FAERS Safety Report 4999633-3 (Version None)
Quarter: 2006Q2

REPORT INFORMATION
  Report Type: 
  Country: None (occurrence: None)
  Receive Date: 20060511
  Receipt Date: 20060502
  Transmission Date: 20061013
  Serious: Yes (Other)
  Sender: FDA-Public Use
  Company Number: PHBS2006BR06608

PATIENT
  Sex: Female
  Weight: 69.3 kg

DRUGS (3)
  1. OLCADIL [Suspect]
     Indication: ANXIETY
     Dosage: 2 MG (1 TABLET) PER DAY
     Route: 048
  2. WFORFOI [Concomitant]
     Indication: HORMONE REPLACEMENT THERAPY
     Route: 048
  3. LUDIOMIL [Suspect]
     Indication: DEPRESSION
     Dosage: 1 TABLET/D
     Route: 048

REACTIONS (11)
  - ASTHENIA [None]
  - BLOOD PRESSURE DECREASED [None]
  - DEPRESSED MOOD [None]
  - ECHOCARDIOGRAM ABNORMAL [None]
  - FEELING ABNORMAL [None]
  - MALAISE [None]
  - NAUSEA [None]
  - PERIPHERAL COLDNESS [None]
  - SOMNOLENCE [None]
  - VENTRICULAR DYSFUNCTION [None]
  - VENTRICULAR HYPERTROPHY [None]
